FAERS Safety Report 24740509 (Version 1)
Quarter: 2024Q4

REPORT INFORMATION
  Report Type: Spontaneous
  Country: US (occurrence: US)
  Receive Date: 20241216
  Receipt Date: 20241216
  Transmission Date: 20250114
  Serious: No
  Sender: ENDO
  Company Number: US-ENDO USA, INC.-2024-050587

PATIENT
  Sex: Male

DRUGS (4)
  1. XIAFLEX [Suspect]
     Active Substance: COLLAGENASE CLOSTRIDIUM HISTOLYTICUM
     Indication: Peyronie^s disease
     Dosage: UNK UNKNOWN, UNKNOWN (CYCLE 1, INJECTION 1)
     Route: 051
     Dates: start: 202407
  2. XIAFLEX [Suspect]
     Active Substance: COLLAGENASE CLOSTRIDIUM HISTOLYTICUM
     Dosage: UNK UNKNOWN, UNKNOWN (CYCLE 1, INJECTION 2)
     Route: 051
     Dates: start: 202407
  3. XIAFLEX [Suspect]
     Active Substance: COLLAGENASE CLOSTRIDIUM HISTOLYTICUM
     Dosage: UNK UNKNOWN, UNKNOWN (CYCLE 2, INJECTION 1) 3 OR 4 WEEKS AGO
     Route: 051
     Dates: start: 2024
  4. XIAFLEX [Suspect]
     Active Substance: COLLAGENASE CLOSTRIDIUM HISTOLYTICUM
     Dosage: UNK UNKNOWN, UNKNOWN (CYCLE 2, INJECTION 2) 3 OR 4 WEEKS AGO
     Route: 051
     Dates: start: 2024

REACTIONS (9)
  - Vascular rupture [Not Recovered/Not Resolved]
  - Haemorrhage [Not Recovered/Not Resolved]
  - Skin wound [Not Recovered/Not Resolved]
  - Sensitive skin [Not Recovered/Not Resolved]
  - Burning sensation [Not Recovered/Not Resolved]
  - Peyronie^s disease [Not Recovered/Not Resolved]
  - Skin discolouration [Recovered/Resolved]
  - Drug ineffective [Not Recovered/Not Resolved]
  - Inappropriate schedule of product administration [Recovered/Resolved]

NARRATIVE: CASE EVENT DATE: 20240101
